FAERS Safety Report 8272209-0 (Version None)
Quarter: 2012Q2

REPORT INFORMATION
  Report Type: 
  Country: None (occurrence: None)
  Receive Date: 20120410
  Receipt Date: 20120404
  Transmission Date: 20120825
  Serious: Yes (Other)
  Sender: FDA-Public Use
  Company Number: US-ASTRAZENECA-2012SE22417

PATIENT
  Age: 55 Year
  Sex: Female
  Weight: 70.3 kg

DRUGS (11)
  1. HYDROCODONE BITARTRATE [Concomitant]
     Indication: ANALGESIC THERAPY
  2. ZETIA [Concomitant]
     Indication: BLOOD CHOLESTEROL ABNORMAL
  3. LASIX [Concomitant]
     Indication: FLUID RETENTION
  4. NEXIUM [Suspect]
     Route: 048
  5. XANAX [Concomitant]
     Indication: PANIC ATTACK
  6. LIPITOR [Concomitant]
     Indication: BLOOD CHOLESTEROL ABNORMAL
  7. RESTORIL [Concomitant]
     Indication: SLEEP DISORDER
  8. LASIX [Concomitant]
     Indication: CARDIAC DISORDER
  9. NEXIUM [Suspect]
     Indication: GASTROOESOPHAGEAL REFLUX DISEASE
     Route: 048
     Dates: start: 20111101, end: 20120115
  10. PRILOSEC [Suspect]
     Indication: GASTROOESOPHAGEAL REFLUX DISEASE
     Route: 048
  11. FENTANYL CITRATE [Concomitant]

REACTIONS (9)
  - LUNG NEOPLASM MALIGNANT [None]
  - DRUG PRESCRIBING ERROR [None]
  - SLEEP DISORDER DUE TO GENERAL MEDICAL CONDITION, INSOMNIA TYPE [None]
  - DRUG INEFFECTIVE [None]
  - MUCOSA VESICLE [None]
  - WEIGHT DECREASED [None]
  - DYSPEPSIA [None]
  - VOMITING [None]
  - RADIATION INJURY [None]
